FAERS Safety Report 4789432-X (Version None)
Quarter: 2005Q4

REPORT INFORMATION
  Report Type: 
  Country: None (occurrence: None)
  Receive Date: 20051004
  Receipt Date: 20050919
  Transmission Date: 20060501
  Serious: Yes (Hospitalization)
  Sender: FDA-Public Use
  Company Number: US_0504115858

PATIENT
  Age: 28 Year
  Sex: Male
  Weight: 91 kg

DRUGS (3)
  1. ZYPREXA [Suspect]
     Indication: BIPOLAR DISORDER
     Dosage: 10 MG DAY
     Dates: start: 20031118, end: 20040213
  2. EFFEXOR [Concomitant]
  3. TRILEPTAL [Concomitant]

REACTIONS (7)
  - CELLULITIS [None]
  - CHEST PAIN [None]
  - CONDITION AGGRAVATED [None]
  - DEPRESSION [None]
  - DIABETES MELLITUS NON-INSULIN-DEPENDENT [None]
  - ERECTILE DYSFUNCTION [None]
  - SUICIDAL IDEATION [None]
